FAERS Safety Report 12438665 (Version 8)
Quarter: 2018Q2

REPORT INFORMATION
  Report Type: Report from Study
  Country: IT (occurrence: IT)
  Receive Date: 20160606
  Receipt Date: 20180619
  Transmission Date: 20180711
  Serious: No
  Sender: FDA-Public Use
  Company Number: IT-SA-2016SA094381

PATIENT
  Age: 65 Year
  Sex: Male

DRUGS (11)
  1. FLUOROURACIL. [Suspect]
     Active Substance: FLUOROURACIL
     Dosage: 4500 MG,QCY
     Route: 041
     Dates: start: 20160427, end: 20160427
  2. IRINOTECAN [Suspect]
     Active Substance: IRINOTECAN
     Dosage: 340 MG,QCY
     Route: 041
     Dates: start: 20160427, end: 20160427
  3. FOLINIC ACID [Suspect]
     Active Substance: LEUCOVORIN
     Dosage: 380 MG,QCY
     Route: 041
     Dates: start: 20160427, end: 20160427
  4. SUCRALFATE. [Concomitant]
     Active Substance: SUCRALFATE
     Dosage: UNK
     Dates: start: 20160330
  5. AFLIBERCEPT [Suspect]
     Active Substance: AFLIBERCEPT
     Indication: COLORECTAL CANCER METASTATIC
     Dosage: 160 MG,QCY
     Route: 041
     Dates: start: 20160217, end: 20160217
  6. FLUOROURACIL. [Suspect]
     Active Substance: FLUOROURACIL
     Indication: COLORECTAL CANCER METASTATIC
     Dosage: 760 MG,QCY
     Route: 040
     Dates: start: 20160217, end: 20160217
  7. AFLIBERCEPT [Suspect]
     Active Substance: AFLIBERCEPT
     Dosage: 320 MG,QCY
     Route: 041
     Dates: start: 20160427, end: 20160427
  8. FOLINIC ACID [Suspect]
     Active Substance: LEUCOVORIN
     Indication: COLORECTAL CANCER METASTATIC
     Dosage: 380 MG,QCY
     Route: 041
     Dates: start: 20160217, end: 20160217
  9. FLUOROURACIL. [Suspect]
     Active Substance: FLUOROURACIL
     Dosage: 4500 MG,QCY
     Route: 041
     Dates: start: 20160217, end: 20160217
  10. FLUOROURACIL. [Suspect]
     Active Substance: FLUOROURACIL
     Dosage: 760 MG,QCY
     Route: 040
     Dates: start: 20160427, end: 20160427
  11. IRINOTECAN [Suspect]
     Active Substance: IRINOTECAN
     Indication: COLORECTAL CANCER METASTATIC
     Dosage: 340 MG,QCY
     Route: 041
     Dates: start: 20160217, end: 20160217

REACTIONS (2)
  - Portal vein thrombosis [Recovered/Resolved]
  - Alopecia [Recovered/Resolved]

NARRATIVE: CASE EVENT DATE: 20160427
